FAERS Safety Report 7959447-9 (Version None)
Quarter: 2011Q4

REPORT INFORMATION
  Report Type: 
  Country: None (occurrence: None)
  Receive Date: 20111206
  Receipt Date: 20111201
  Transmission Date: 20120403
  Serious: No
  Sender: FDA-Public Use
  Company Number: US-PFIZER INC-2011294503

PATIENT
  Sex: Female
  Weight: 72.562 kg

DRUGS (4)
  1. MORPHINE [Concomitant]
     Indication: OSTEOARTHRITIS
     Dosage: UNK
  2. CEPHALEXIN [Suspect]
     Indication: INFECTION
     Dosage: UNK
  3. SEPTRA [Suspect]
     Indication: INFECTION
     Dosage: UNK
  4. AMOXICILLIN [Suspect]
     Indication: INFECTION
     Dosage: UNK

REACTIONS (1)
  - RASH [None]
